FAERS Safety Report 4606136-4 (Version None)
Quarter: 2005Q1

REPORT INFORMATION
  Report Type: 
  Country: None (occurrence: None)
  Receive Date: 20050309
  Receipt Date: 20050224
  Transmission Date: 20050727
  Serious: Yes (Other)
  Sender: FDA-Public Use
  Company Number: 2005037417

PATIENT
  Sex: Female

DRUGS (1)
  1. DEPO-PROVERA [Suspect]
     Indication: CONTRACEPTION
     Dosage: (1ST INJECTION)
     Dates: start: 20010501, end: 20010501

REACTIONS (7)
  - BENIGN INTRACRANIAL HYPERTENSION [None]
  - CEREBRAL VENOUS THROMBOSIS [None]
  - HEADACHE [None]
  - INTRACRANIAL PRESSURE INCREASED [None]
  - PAPILLOEDEMA [None]
  - VISUAL DISTURBANCE [None]
  - VOMITING [None]
